FAERS Safety Report 11667643 (Version 1)
Quarter: 2015Q4

REPORT INFORMATION
  Report Type: Spontaneous
  Country: US (occurrence: US)
  Receive Date: 20151027
  Receipt Date: 20151027
  Transmission Date: 20160304
  Serious: No
  Sender: FDA-Public Use
  Company Number: US-MEDA-2015100053

PATIENT
  Age: 58 Year
  Sex: Female
  Weight: 59 kg

DRUGS (1)
  1. AEROSPAN [Suspect]
     Active Substance: FLUNISOLIDE
     Indication: ASTHMA
     Dates: start: 201505

REACTIONS (2)
  - Drug dose omission [Recovered/Resolved]
  - Feeling hot [Not Recovered/Not Resolved]

NARRATIVE: CASE EVENT DATE: 2015
